FAERS Safety Report 4354146-7 (Version None)
Quarter: 2004Q2

REPORT INFORMATION
  Report Type: 
  Country: None (occurrence: None)
  Receive Date: 20040503
  Receipt Date: 20040420
  Transmission Date: 20050107
  Serious: Yes (Hospitalization)
  Sender: FDA-Public Use
  Company Number: 2004-115414-NL

PATIENT
  Age: 78 Year
  Sex: Female

DRUGS (13)
  1. MIRTAZAPINE [Suspect]
     Indication: DEPRESSION
     Dosage: 60 MG/45 MG/60 MG
     Dates: start: 20030101, end: 20030421
  2. MIRTAZAPINE [Suspect]
     Indication: DEPRESSION
     Dosage: 60 MG/45 MG/60 MG
     Dates: start: 20030422, end: 20030602
  3. VENLAFAXINE HCL [Suspect]
     Indication: DISEASE RECURRENCE
     Dosage: 75 MG/112.5 MG
     Dates: start: 20030413, end: 20030424
  4. VENLAFAXINE HCL [Suspect]
     Indication: DISEASE RECURRENCE
     Dosage: 75 MG/112.5 MG
     Dates: start: 20030425, end: 20030428
  5. NORTRIPYTYLINE HYDROCHLORIDE [Concomitant]
  6. ZOPICLONE [Concomitant]
  7. LORAZEPAM [Concomitant]
  8. PANTOPRAZOLE SODIUM [Concomitant]
  9. REFECOXIB [Concomitant]
  10. METFORMIN HYDROCHLORIDE [Concomitant]
  11. ASPIRIN [Concomitant]
  12. ATORVASTATIN CALCIUM [Concomitant]
  13. ATENOLOL [Concomitant]

REACTIONS (1)
  - HYPONATRAEMIA [None]
